FAERS Safety Report 17007697 (Version 1)
Quarter: 2019Q4

REPORT INFORMATION
  Report Type: Spontaneous
  Country: US (occurrence: US)
  Receive Date: 20191108
  Receipt Date: 20191108
  Transmission Date: 20200122
  Serious: Yes (Other)
  Sender: FDA-Public Use
  Company Number: US-009507513-1910USA017336

PATIENT
  Age: 15 Year
  Sex: Female
  Weight: 58.96 kg

DRUGS (1)
  1. NEXPLANON [Suspect]
     Active Substance: ETONOGESTREL
     Dosage: A ROD
     Route: 059
     Dates: start: 20190228

REACTIONS (3)
  - Product administered to patient of inappropriate age [Unknown]
  - Device dislocation [Unknown]
  - Complication associated with device [Unknown]

NARRATIVE: CASE EVENT DATE: 20190228
